FAERS Safety Report 7288691-1 (Version None)
Quarter: 2011Q1

REPORT INFORMATION
  Report Type: 
  Country: None (occurrence: None)
  Receive Date: 20110119
  Receipt Date: 20110119
  Transmission Date: 20110831
  Serious: No
  Sender: FDA-Public Use
  Company Number: None

PATIENT
  Age: 23 Year
  Sex: Female

DRUGS (3)
  1. RIFAMPIN [Suspect]
     Indication: LIVER INJURY
     Dates: start: 20090929, end: 20091024
  2. BACTRIM [Suspect]
     Indication: LIVER INJURY
     Dates: start: 20090930, end: 20091015
  3. MOXIFLOXACIN [Suspect]
     Indication: LIVER INJURY
     Dates: start: 20091015, end: 20091024

REACTIONS (11)
  - ASCITES [None]
  - ACUTE HEPATIC FAILURE [None]
  - VIITH NERVE PARALYSIS [None]
  - RENAL FAILURE [None]
  - INTERNATIONAL NORMALISED RATIO INCREASED [None]
  - HEPATOTOXICITY [None]
  - DRUG RASH WITH EOSINOPHILIA AND SYSTEMIC SYMPTOMS [None]
  - SHIFT TO THE LEFT [None]
  - CONFUSIONAL STATE [None]
  - HEPATITIS [None]
  - SPLENOMEGALY [None]
